APPROVED DRUG PRODUCT: DOXYCYCLINE HYCLATE
Active Ingredient: DOXYCYCLINE HYCLATE
Strength: EQ 150MG BASE
Dosage Form/Route: TABLET, DELAYED RELEASE;ORAL
Application: A206772 | Product #003
Applicant: ZYDUS PHARMACEUTICALS USA INC
Approved: Dec 21, 2018 | RLD: No | RS: No | Type: DISCN